FAERS Safety Report 16715126 (Version 1)
Quarter: 2019Q3

REPORT INFORMATION
  Report Type: Spontaneous
  Country: US (occurrence: US)
  Receive Date: 20190819
  Receipt Date: 20190819
  Transmission Date: 20191005
  Serious: No
  Sender: FDA-Public Use
  Company Number: US-PFIZER INC-2019177412

PATIENT
  Age: 76 Year
  Sex: Female

DRUGS (5)
  1. LYRICA [Suspect]
     Active Substance: PREGABALIN
     Indication: DIABETIC NEUROPATHY
     Dosage: 75 MG, 3X/DAY(TID (THREE TIMES A DAY))
     Route: 048
  2. LYRICA [Suspect]
     Active Substance: PREGABALIN
     Dosage: 375 MG, DAILY (1 PO (PER ORAL) Q FIVE TIMES PER DAY)/I^M TAKING FIVE (LYRICA CAPSULES) A DAY
     Route: 048
  3. LYRICA [Suspect]
     Active Substance: PREGABALIN
     Indication: RHEUMATOID ARTHRITIS
     Dosage: 75 MG, UNK
  4. LYRICA [Suspect]
     Active Substance: PREGABALIN
     Dosage: 150 MG, UNK
  5. LYRICA [Suspect]
     Active Substance: PREGABALIN
     Dosage: 75 MG, 4X/DAY(1 (ONE) CAPSULE 1 CAPSULE QID (FOUR TIMES A DAY))
     Route: 048

REACTIONS (3)
  - Off label use [Unknown]
  - Pruritus generalised [Unknown]
  - Product use issue [Unknown]
